FAERS Safety Report 7619098-2 (Version None)
Quarter: 2011Q3

REPORT INFORMATION
  Report Type: 
  Country: None (occurrence: None)
  Receive Date: 20110718
  Receipt Date: 20110715
  Transmission Date: 20111222
  Serious: Yes (Hospitalization)
  Sender: FDA-Public Use
  Company Number: US-ALLERGAN-1105562US

PATIENT
  Age: 40 Year
  Sex: Female
  Weight: 58.957 kg

DRUGS (5)
  1. SYNTHROID [Concomitant]
     Indication: THYROID DISORDER
  2. RELPAX [Concomitant]
     Indication: HEADACHE
     Dosage: UNK
  3. CORGARD [Concomitant]
     Indication: HEADACHE
  4. BOTULINUM TOXIN TYPE A [Suspect]
     Indication: MYOFASCIAL PAIN SYNDROME
  5. BOTULINUM TOXIN TYPE A [Suspect]
     Indication: BACK PAIN
     Dosage: 100 UNITS, SINGLE
     Route: 030
     Dates: start: 20101012, end: 20101012

REACTIONS (18)
  - VERTIGO [None]
  - PYREXIA [None]
  - ANXIETY [None]
  - VISUAL IMPAIRMENT [None]
  - MALAISE [None]
  - INFLUENZA LIKE ILLNESS [None]
  - COGNITIVE DISORDER [None]
  - HEAD DISCOMFORT [None]
  - MYALGIA [None]
  - NEURALGIA [None]
  - HYPERAESTHESIA [None]
  - DISTURBANCE IN ATTENTION [None]
  - MUSCULAR WEAKNESS [None]
  - FEELING HOT [None]
  - TREMOR [None]
  - NEUROPATHY PERIPHERAL [None]
  - ASTHENIA [None]
  - PHOTOPHOBIA [None]
